FAERS Safety Report 7950108-9 (Version None)
Quarter: 2011Q4

REPORT INFORMATION
  Report Type: 
  Country: None (occurrence: None)
  Receive Date: 20111130
  Receipt Date: 20111121
  Transmission Date: 20120403
  Serious: Yes (Hospitalization)
  Sender: FDA-Public Use
  Company Number: US-BAYER-201033412NA

PATIENT
  Age: 16 Year
  Sex: Female
  Weight: 67.12 kg

DRUGS (7)
  1. YASMIN [Suspect]
     Indication: CONTRACEPTION
     Dates: start: 20040301, end: 20050615
  2. NEXIUM [Concomitant]
     Indication: GASTROOESOPHAGEAL REFLUX DISEASE
  3. PREVACID [Concomitant]
     Indication: GASTROOESOPHAGEAL REFLUX DISEASE
  4. YASMIN [Suspect]
     Indication: MENSTRUAL CYCLE MANAGEMENT
     Dosage: UNK
     Dates: start: 20040401, end: 20080101
  5. METFORMIN HCL [Concomitant]
     Indication: UNEVALUABLE EVENT
     Dosage: 500 MG, UNK
  6. NSAID'S [Concomitant]
     Dosage: UNK UNK, PRN
  7. NEXIUM [Concomitant]

REACTIONS (7)
  - PANCREATITIS [None]
  - GALLBLADDER DISORDER [None]
  - PROCEDURAL PAIN [None]
  - DYSPEPSIA [None]
  - PAIN [None]
  - CHOLECYSTITIS CHRONIC [None]
  - ABDOMINAL PAIN [None]
